FAERS Safety Report 8529745-9 (Version None)
Quarter: 2012Q3

REPORT INFORMATION
  Report Type: 
  Country: None (occurrence: None)
  Receive Date: 20120723
  Receipt Date: 20120710
  Transmission Date: 20120928
  Serious: Yes (Other)
  Sender: FDA-Public Use
  Company Number: JP-VERTEX PHARMACEUTICALS INC.-AE-2012-010453

PATIENT
  Age: 55 Year
  Sex: Female

DRUGS (7)
  1. TELAVIC (TELAPREVIR) [Suspect]
     Route: 048
     Dates: start: 20120611
  2. RIBAVIRIN [Concomitant]
     Route: 048
     Dates: start: 20120618, end: 20120701
  3. PEGINTERFERON ALFA-2B [Concomitant]
     Indication: HEPATITIS C
     Route: 058
     Dates: start: 20120519, end: 20120702
  4. PEGINTERFERON ALFA-2B [Concomitant]
     Route: 058
     Dates: start: 20120709
  5. TELAVIC (TELAPREVIR) [Suspect]
     Indication: HEPATITIS C
     Route: 048
     Dates: start: 20120519, end: 20120610
  6. RIBAVIRIN [Concomitant]
     Route: 048
     Dates: start: 20120702
  7. RIBAVIRIN [Concomitant]
     Indication: HEPATITIS C
     Route: 048
     Dates: start: 20120519, end: 20120617

REACTIONS (1)
  - WHITE BLOOD CELL COUNT DECREASED [None]
